FAERS Safety Report 13302424 (Version 3)
Quarter: 2017Q1

REPORT INFORMATION
  Report Type: Report from Study
  Country: US (occurrence: US)
  Receive Date: 20170307
  Receipt Date: 20170314
  Transmission Date: 20170428
  Serious: Yes (Other)
  Sender: FDA-Public Use
  Company Number: US-BIOGEN-2017BI00366912

PATIENT
  Age: 54 Year
  Sex: Male

DRUGS (1)
  1. ALPROLIX [Suspect]
     Active Substance: EFTRENONACOG ALFA
     Indication: FACTOR IX DEFICIENCY
     Route: 065

REACTIONS (4)
  - Anaphylactic reaction [Unknown]
  - Arthropod bite [Unknown]
  - Oedema peripheral [Unknown]
  - Haemorrhage [Unknown]

NARRATIVE: CASE EVENT DATE: 201702
